FAERS Safety Report 24795563 (Version 1)
Quarter: 2024Q4

REPORT INFORMATION
  Report Type: Spontaneous
  Country: FR (occurrence: FR)
  Receive Date: 20241231
  Receipt Date: 20241231
  Transmission Date: 20250114
  Serious: Yes (Other)
  Sender: AUROBINDO
  Company Number: FR-ROCHE-2218485

PATIENT
  Age: 9 Year
  Sex: Male

DRUGS (14)
  1. FLUDARABINE [Suspect]
     Active Substance: FLUDARABINE PHOSPHATE
     Indication: Bone marrow conditioning regimen
     Dosage: 30 MILLIGRAM/SQ. METER, DAILY (FROM D-8 TO D-4),
     Route: 065
  2. PREDNISOLONE [Suspect]
     Active Substance: PREDNISOLONE
     Indication: Prophylaxis against graft versus host disease
     Dosage: UNK
     Route: 065
  3. AZITHROMYCIN [Suspect]
     Active Substance: AZITHROMYCIN
     Indication: Infection prophylaxis
     Dosage: UNK
     Route: 065
  4. AZITHROMYCIN [Suspect]
     Active Substance: AZITHROMYCIN
     Indication: Cryptosporidiosis infection
  5. MELPHALAN [Suspect]
     Active Substance: MELPHALAN
     Indication: Bone marrow conditioning regimen
     Dosage: 70 MILLIGRAM/SQ. METER, DAILY (AT D-3 AND D-2)
     Route: 065
  6. THYMOCYTE IMMUNE GLOBULIN NOS [Suspect]
     Active Substance: THYMOCYTE IMMUNE GLOBULIN NOS
     Indication: Bone marrow conditioning regimen
     Dosage: 2.5 MILLIGRAM/KILOGRAM, DAILY  (FROM D-2 TO D + 2)
     Route: 065
  7. CYCLOSPORINE [Suspect]
     Active Substance: CYCLOSPORINE
     Indication: Prophylaxis against graft versus host disease
     Dosage: UNK
     Route: 065
  8. RITUXIMAB [Suspect]
     Active Substance: RITUXIMAB
     Indication: Infection prophylaxis
     Dosage: 375 MILLIGRAM/SQ. METER, 1 WEEK
     Route: 042
  9. METHYLPREDNISOLONE [Suspect]
     Active Substance: METHYLPREDNISOLONE
     Indication: Prophylaxis against graft versus host disease
     Dosage: UNK
     Route: 065
  10. CIDOFOVIR [Suspect]
     Active Substance: CIDOFOVIR
     Indication: Infection prophylaxis
     Dosage: 5 MILLIGRAM/KILOGRAM, 1 WEEK
     Route: 065
  11. COTRIMOXAZOLE [Suspect]
     Active Substance: SULFAMETHOXAZOLE\TRIMETHOPRIM
     Indication: Infection prophylaxis
     Dosage: UNK
     Route: 065
  12. NITAZOXANIDE [Suspect]
     Active Substance: NITAZOXANIDE
     Indication: Infection prophylaxis
     Dosage: UNK
     Route: 065
  13. NITAZOXANIDE [Suspect]
     Active Substance: NITAZOXANIDE
     Indication: Cryptosporidiosis infection
  14. THYMOCYTE IMMUNE GLOBULIN NOS [Suspect]
     Active Substance: THYMOCYTE IMMUNE GLOBULIN NOS
     Indication: Infection prophylaxis
     Dosage: UNK
     Route: 065

REACTIONS (7)
  - Staphylococcal sepsis [Unknown]
  - Cytomegalovirus infection reactivation [Unknown]
  - BK virus infection [Unknown]
  - Cystitis haemorrhagic [Unknown]
  - Enteritis [Unknown]
  - Graft versus host disease [Unknown]
  - Engraftment syndrome [Unknown]
